FAERS Safety Report 9114899 (Version 2)
Quarter: 2013Q1

REPORT INFORMATION
  Report Type: Spontaneous
  Country: FR (occurrence: FR)
  Receive Date: 20130208
  Receipt Date: 20130225
  Transmission Date: 20140127
  Serious: Yes (Life-Threatening, Hospitalization, Other)
  Sender: FDA-Public Use
  Company Number: FR-ABBOTT-13P-056-1045117-00

PATIENT
  Age: 56 Year
  Sex: Male

DRUGS (1)
  1. HUMIRA [Suspect]
     Indication: PRODUCT USED FOR UNKNOWN INDICATION

REACTIONS (5)
  - Sigmoiditis [Recovered/Resolved]
  - Sepsis [Recovered/Resolved]
  - Lung disorder [Recovered/Resolved]
  - Streptococcal sepsis [Recovering/Resolving]
  - Diverticulitis [Recovering/Resolving]
